FAERS Safety Report 19275945 (Version 2)
Quarter: 2021Q2

REPORT INFORMATION
  Report Type: Report from Study
  Country: CO (occurrence: CO)
  Receive Date: 20210519
  Receipt Date: 20210602
  Transmission Date: 20210717
  Serious: Yes (Death, Hospitalization)
  Sender: FDA-Public Use
  Company Number: CO-BAYER-2021-137659

PATIENT
  Age: 32 Year
  Sex: Male

DRUGS (2)
  1. ADEMPAS [Suspect]
     Active Substance: RIOCIGUAT
     Indication: PULMONARY HYPERTENSION
     Dosage: 1 UNK
     Dates: start: 2021
  2. ADEMPAS [Suspect]
     Active Substance: RIOCIGUAT
     Indication: PULMONARY HYPERTENSION
     Dosage: 1 MG, Q8HR
     Route: 048
     Dates: start: 20200716, end: 20210422

REACTIONS (10)
  - Asphyxia [None]
  - Syncope [Unknown]
  - Dyspnoea [Not Recovered/Not Resolved]
  - Hypertension [None]
  - Hypotension [Fatal]
  - Fatigue [None]
  - Incorrect product administration duration [None]
  - Oedema peripheral [Not Recovered/Not Resolved]
  - Dyspnoea [None]
  - Choking sensation [Not Recovered/Not Resolved]

NARRATIVE: CASE EVENT DATE: 20210422
